FAERS Safety Report 6587785-3 (Version None)
Quarter: 2010Q1

REPORT INFORMATION
  Report Type: 
  Country: None (occurrence: None)
  Receive Date: 20100218
  Receipt Date: 20100208
  Transmission Date: 20100710
  Serious: Yes (Other)
  Sender: FDA-Public Use
  Company Number: PHEH2006US13652

PATIENT
  Sex: Female

DRUGS (14)
  1. AREDIA [Suspect]
     Dosage: UNK
     Dates: start: 20031113, end: 20040108
  2. ZOMETA [Suspect]
     Dosage: UNK
     Route: 042
     Dates: start: 20040205
  3. CHEMOTHERAPEUTICS NOS [Concomitant]
  4. CLEOCIN [Concomitant]
     Dosage: 300 MG, Q6H
     Route: 048
  5. FEMARA [Concomitant]
  6. MILK OF MAGNESIA TAB [Concomitant]
  7. MULTI-VITAMINS [Concomitant]
  8. CELEBREX [Concomitant]
  9. PRINIVIL [Concomitant]
  10. DETROL [Concomitant]
  11. CALCIUM [Concomitant]
  12. GERITOL                                 /USA/ [Concomitant]
  13. NORTRIPTYLINE HCL [Concomitant]
  14. ACTONEL [Concomitant]

REACTIONS (26)
  - ANAEMIA [None]
  - ANXIETY [None]
  - BONE DEBRIDEMENT [None]
  - BONE DISORDER [None]
  - BONE PAIN [None]
  - BREATH ODOUR [None]
  - DECREASED INTEREST [None]
  - DEFORMITY [None]
  - DIZZINESS [None]
  - EMOTIONAL DISTRESS [None]
  - FACIAL PAIN [None]
  - GENERAL PHYSICAL HEALTH DETERIORATION [None]
  - GINGIVITIS [None]
  - HYPOPHAGIA [None]
  - IMPAIRED HEALING [None]
  - OPEN WOUND [None]
  - ORAL PAIN [None]
  - OSTEOMYELITIS [None]
  - OSTEONECROSIS [None]
  - PAIN [None]
  - PERIPHERAL VASCULAR DISORDER [None]
  - PRIMARY SEQUESTRUM [None]
  - SEQUESTRECTOMY [None]
  - SPINAL COLUMN STENOSIS [None]
  - STOMATITIS NECROTISING [None]
  - TOOTH EXTRACTION [None]
